FAERS Safety Report 13772528 (Version 2)
Quarter: 2017Q3

REPORT INFORMATION
  Report Type: Spontaneous
  Country: ES (occurrence: ES)
  Receive Date: 20170720
  Receipt Date: 20170726
  Transmission Date: 20171127
  Serious: Yes (Death, Other)
  Sender: FDA-Public Use
  Company Number: ES-GLAXOSMITHKLINE-ES2017GSK111263

PATIENT
  Age: 53 Year
  Sex: Male

DRUGS (1)
  1. ELONTRIL [Suspect]
     Active Substance: BUPROPION HYDROCHLORIDE
     Indication: DEPRESSION
     Dosage: UNK

REACTIONS (7)
  - Toxicity to various agents [Fatal]
  - Myocardial ischaemia [Unknown]
  - Pericardial haemorrhage [Unknown]
  - Myocardial infarction [Fatal]
  - Overdose [Unknown]
  - Acute pulmonary oedema [Unknown]
  - Coronary artery occlusion [Unknown]
